FAERS Safety Report 9741132 (Version 3)
Quarter: 2014Q1

REPORT INFORMATION
  Report Type: Spontaneous
  Country: FR (occurrence: FR)
  Receive Date: 20131209
  Receipt Date: 20140127
  Transmission Date: 20141002
  Serious: Yes (Other)
  Sender: FDA-Public Use
  Company Number: FR-TEVA-448094ISR

PATIENT
  Age: 77 Year
  Sex: Female
  Weight: 86 kg

DRUGS (5)
  1. OXALIPLATINE TEVA [Suspect]
     Indication: COLON NEOPLASM
     Dosage: 70% OF 115MG, 7 COURSE OF SIMPLIFIED FOLFOX 4 PROTOCOL
     Route: 041
     Dates: start: 20131125, end: 20131125
  2. SOLUMEDROL [Suspect]
     Indication: COLON NEOPLASM
     Dosage: 80 MILLIGRAM DAILY; 7 TH COURSE OF SIMPLIFIED FOLFOX 4 PROTOCOL
     Route: 042
     Dates: start: 20131125, end: 20131125
  3. ONDANSETRON AGUETTANT [Suspect]
     Indication: COLON NEOPLASM
     Dosage: 8 MILLIGRAM DAILY;
     Route: 042
     Dates: start: 20131125, end: 20131125
  4. ELVORINE [Suspect]
     Indication: COLON NEOPLASM
     Dosage: 400 MILLIGRAM DAILY; 7 TH COURSE OF SIMPLIFIED FOLFOX 4 PROTOCOL
     Route: 041
     Dates: start: 20131125, end: 20131125
  5. 5-FLUOROURACIL [Concomitant]
     Indication: COLON NEOPLASM
     Dosage: 7TH COURSE OF SIMPLIFIED FOLFOX 4 PROTOCOL
     Route: 041

REACTIONS (10)
  - Angioedema [Recovered/Resolved]
  - Asphyxia [Recovered/Resolved]
  - Pruritus [Recovered/Resolved]
  - Rash [Recovered/Resolved]
  - Dysphagia [Recovered/Resolved]
  - Anaphylactic reaction [Recovered/Resolved]
  - Paralysis [Recovered/Resolved]
  - Trismus [Recovered/Resolved]
  - Paraesthesia [Recovered/Resolved]
  - Dyspepsia [Recovered/Resolved]
